FAERS Safety Report 6346984-6 (Version None)
Quarter: 2009Q3

REPORT INFORMATION
  Report Type: 
  Country: None (occurrence: None)
  Receive Date: 20090908
  Receipt Date: 20090908
  Transmission Date: 20100115
  Serious: No
  Sender: FDA-Public Use
  Company Number: None

PATIENT
  Age: 46 Year
  Sex: Female
  Weight: 65.7716 kg

DRUGS (1)
  1. PATANASE [Suspect]
     Indication: SINUSITIS
     Dosage: 2 SPRAYS PER NOSTRIL TWICE A DAY NASAL
     Route: 045
     Dates: start: 20090825, end: 20090901

REACTIONS (1)
  - HYPOAESTHESIA ORAL [None]
